FAERS Safety Report 4904560-3 (Version None)
Quarter: 2006Q1

REPORT INFORMATION
  Report Type: 
  Country: None (occurrence: None)
  Receive Date: 20060208
  Receipt Date: 20060130
  Transmission Date: 20060701
  Serious: Yes (Other)
  Sender: FDA-Public Use
  Company Number: JP-ROCHE-434879

PATIENT
  Age: 4 Year

DRUGS (1)
  1. TAMIFLU [Suspect]
     Indication: DRUG USE FOR UNKNOWN INDICATION
     Route: 048

REACTIONS (1)
  - HYPOTHERMIA [None]
